FAERS Safety Report 17928491 (Version 8)
Quarter: 2024Q1

REPORT INFORMATION
  Report Type: Spontaneous
  Country: US (occurrence: US)
  Receive Date: 20200623
  Receipt Date: 20240103
  Transmission Date: 20240409
  Serious: Yes (Life-Threatening, Hospitalization)
  Sender: FDA-Public Use
  Company Number: US-BIOGEN-2020BI00886637

PATIENT
  Age: 62 Year
  Sex: Male

DRUGS (3)
  1. TYSABRI [Interacting]
     Active Substance: NATALIZUMAB
     Indication: Multiple sclerosis
     Dosage: INFUSED OVER 1 HOUR
     Route: 050
     Dates: start: 20120627, end: 20171201
  2. TYSABRI [Interacting]
     Active Substance: NATALIZUMAB
     Route: 050
     Dates: start: 20200109, end: 20200528
  3. TYSABRI [Interacting]
     Active Substance: NATALIZUMAB
     Route: 050
     Dates: start: 202012

REACTIONS (17)
  - Drug interaction [Recovered/Resolved]
  - Anaemia [Recovered/Resolved]
  - Full blood count increased [Recovered/Resolved]
  - Osteomyelitis [Recovered/Resolved]
  - Thrombosis [Recovered/Resolved]
  - Prescribed underdose [Not Recovered/Not Resolved]
  - Escherichia urinary tract infection [Recovered/Resolved]
  - Fall [Recovered/Resolved]
  - Skin abrasion [Unknown]
  - Mobility decreased [Not Recovered/Not Resolved]
  - White blood cell disorder [Recovered/Resolved]
  - Musculoskeletal disorder [Not Recovered/Not Resolved]
  - Memory impairment [Not Recovered/Not Resolved]
  - Visual impairment [Not Recovered/Not Resolved]
  - Posture abnormal [Recovered/Resolved]
  - Dyspnoea exertional [Recovered/Resolved]
  - Fatigue [Unknown]

NARRATIVE: CASE EVENT DATE: 20200501
